FAERS Safety Report 9275042 (Version 1)
Quarter: 2013Q2

REPORT INFORMATION
  Report Type: Spontaneous
  Country: US (occurrence: None)
  Receive Date: 20130501
  Receipt Date: 20130501
  Transmission Date: 20140414
  Serious: Yes (Other)
  Sender: FDA-Public Use
  Company Number: None

PATIENT
  Age: 62 Year
  Sex: Female
  Weight: 48.99 kg

DRUGS (1)
  1. PROLIA [Suspect]
     Indication: OSTEOPOROSIS
     Dosage: TWICE A YEAR
     Route: 030
     Dates: start: 20110301, end: 20121219

REACTIONS (7)
  - Oral herpes [None]
  - Acne [None]
  - Nephrolithiasis [None]
  - Dysphagia [None]
  - Asthenia [None]
  - Fatigue [None]
  - Musculoskeletal disorder [None]
